FAERS Safety Report 13817786 (Version 2)
Quarter: 2017Q4

REPORT INFORMATION
  Report Type: Spontaneous
  Country: BA (occurrence: BA)
  Receive Date: 20170731
  Receipt Date: 20171115
  Transmission Date: 20180320
  Serious: Yes (Other)
  Sender: FDA-Public Use
  Company Number: BA-TAKEDA-2017TUS015645

PATIENT
  Age: 50 Year
  Sex: Male

DRUGS (1)
  1. ENTYVIO [Suspect]
     Active Substance: VEDOLIZUMAB
     Indication: COLITIS ULCERATIVE
     Dosage: 300 MG, Q8WEEKS
     Route: 042
     Dates: start: 201608

REACTIONS (1)
  - Mycobacterium tuberculosis complex test positive [Recovering/Resolving]
